FAERS Safety Report 5240095-9 (Version None)
Quarter: 2007Q1

REPORT INFORMATION
  Report Type: 
  Country: None (occurrence: None)
  Receive Date: 20070216
  Receipt Date: 20070206
  Transmission Date: 20070707
  Serious: Yes (Death, Other)
  Sender: FDA-Public Use
  Company Number: AU-PFIZER INC-2007010353

PATIENT
  Sex: Female

DRUGS (4)
  1. DOSTINEX [Suspect]
     Indication: HYPERPROLACTINAEMIA
  2. RISPERDAL [Suspect]
     Indication: SCHIZOPHRENIA
     Route: 030
     Dates: start: 20050501
  3. RISPERDAL [Suspect]
     Route: 048
     Dates: start: 20050501, end: 20061101
  4. SOLIAN [Concomitant]

REACTIONS (4)
  - ABNORMAL BEHAVIOUR [None]
  - PRESCRIBED OVERDOSE [None]
  - SEDATION [None]
  - SUDDEN DEATH [None]
